FAERS Safety Report 13208926 (Version 1)
Quarter: 2017Q1

REPORT INFORMATION
  Report Type: Spontaneous
  Country: IT (occurrence: IT)
  Receive Date: 20170209
  Receipt Date: 20170209
  Transmission Date: 20170428
  Serious: Yes (Other)
  Sender: FDA-Public Use
  Company Number: IT-BAYER-2017-026796

PATIENT
  Age: 20 Year
  Sex: Female

DRUGS (1)
  1. CIPROFLOXACIN. [Suspect]
     Active Substance: CIPROFLOXACIN
     Indication: APPENDICOLITH
     Dosage: 200 MG, ONCE
     Route: 041
     Dates: start: 20170203, end: 20170203

REACTIONS (2)
  - Nausea [Recovering/Resolving]
  - Vertigo [Recovering/Resolving]

NARRATIVE: CASE EVENT DATE: 20170203
